FAERS Safety Report 6108872-X (Version None)
Quarter: 2009Q1

REPORT INFORMATION
  Report Type: 
  Country: None (occurrence: None)
  Receive Date: 20090306
  Receipt Date: 20090223
  Transmission Date: 20090719
  Serious: Yes (Hospitalization, Other)
  Sender: FDA-Public Use
  Company Number: 2009AP000679

PATIENT
  Age: 20 Year
  Sex: Male

DRUGS (2)
  1. LITHIUM CARBONATE CAP [Suspect]
     Indication: BIPOLAR I DISORDER
     Dosage: 450 MG;QD; 900 MG;QD; 1200 MG;QD
  2. QUETIAPINE FUMARATE [Concomitant]

REACTIONS (13)
  - ANTIPSYCHOTIC DRUG LEVEL BELOW THERAPEUTIC [None]
  - CONFUSIONAL STATE [None]
  - DEPRESSED LEVEL OF CONSCIOUSNESS [None]
  - FEELING ABNORMAL [None]
  - GRAND MAL CONVULSION [None]
  - LETHARGY [None]
  - MUSCLE CONTRACTIONS INVOLUNTARY [None]
  - MYOCLONUS [None]
  - NEUROTOXICITY [None]
  - POVERTY OF THOUGHT CONTENT [None]
  - PSYCHIATRIC SYMPTOM [None]
  - SPEECH DISORDER [None]
  - SUICIDE ATTEMPT [None]
